FAERS Safety Report 17492980 (Version 1)
Quarter: 2020Q1

REPORT INFORMATION
  Report Type: Report from Study
  Country: CN (occurrence: CN)
  Receive Date: 20200304
  Receipt Date: 20200304
  Transmission Date: 20200409
  Serious: Yes (Hospitalization)
  Sender: FDA-Public Use
  Company Number: CN-GLAXOSMITHKLINE-2019-TSO02178-CN

PATIENT
  Age: 57 Year
  Sex: Female
  Weight: 55 kg

DRUGS (8)
  1. NIRAPARIB [Suspect]
     Active Substance: NIRAPARIB
     Indication: OVARIAN CANCER
     Dosage: 200 MG, QD
     Route: 048
     Dates: start: 20190415, end: 20190507
  2. METFORMIN HYDROCHLORIDE SUSTAINED-RELEASE TABLETS [Concomitant]
     Dosage: UNK
  3. LISPRO-INSULIN [Concomitant]
     Active Substance: INSULIN LISPRO
     Dosage: UNK
  4. INSULIN GLARGINE [Concomitant]
     Active Substance: INSULIN GLARGINE
     Dosage: 20 UNIT
  5. PIOGLITAZONE HYDROCHLORIDE TABLETS [Concomitant]
     Dosage: UNK
  6. LINAGLIPTIN TABLET [Concomitant]
     Dosage: UNK
  7. INDAPAMIDE. [Concomitant]
     Active Substance: INDAPAMIDE
     Indication: PRODUCT USED FOR UNKNOWN INDICATION
     Dosage: UNK
     Route: 065
  8. METFORMIN [Concomitant]
     Active Substance: METFORMIN HYDROCHLORIDE
     Indication: PRODUCT USED FOR UNKNOWN INDICATION
     Dosage: UNK
     Route: 065
     Dates: start: 2014, end: 20190313

REACTIONS (1)
  - Hyperglycaemia [Recovered/Resolved]

NARRATIVE: CASE EVENT DATE: 20190520
